FAERS Safety Report 15450174 (Version 4)
Quarter: 2019Q3

REPORT INFORMATION
  Report Type: Spontaneous
  Country: US (occurrence: US)
  Receive Date: 20181001
  Receipt Date: 20190912
  Transmission Date: 20191004
  Serious: Yes (Other)
  Sender: FDA-Public Use
  Company Number: US-PFIZER INC-2018393212

PATIENT
  Age: 72 Year
  Sex: Male

DRUGS (5)
  1. EUCRISA [Suspect]
     Active Substance: CRISABOROLE
     Indication: ERYTHEMA
     Dosage: UNK, 2X/DAY
     Route: 061
     Dates: start: 20180912, end: 20180926
  2. CORTISONE [Suspect]
     Active Substance: CORTISONE
     Indication: PURPURA
     Dosage: UNK, 2X/DAY
     Route: 061
     Dates: start: 20180912, end: 20180926
  3. MOMETASONE [Suspect]
     Active Substance: MOMETASONE
     Indication: PURPURA
     Dosage: UNK, 2X/DAY
     Route: 061
     Dates: start: 20180912, end: 20180926
  4. EUCRISA [Suspect]
     Active Substance: CRISABOROLE
     Indication: PURPURA
     Dosage: UNK
     Dates: start: 20180907, end: 20180911
  5. CALCIPOTRIENE. [Suspect]
     Active Substance: CALCIPOTRIENE
     Indication: PURPURA
     Dosage: UNK, 2X/DAY
     Route: 061
     Dates: start: 20180912, end: 20180926

REACTIONS (7)
  - Nerve injury [Unknown]
  - Paraesthesia [Unknown]
  - Off label use [Unknown]
  - Skin discolouration [Recovered/Resolved]
  - Hypoaesthesia [Not Recovered/Not Resolved]
  - Drug ineffective for unapproved indication [Not Recovered/Not Resolved]
  - Condition aggravated [Not Recovered/Not Resolved]

NARRATIVE: CASE EVENT DATE: 201809
